FAERS Safety Report 24294796 (Version 1)
Quarter: 2024Q3

REPORT INFORMATION
  Report Type: Report from Study
  Country: US (occurrence: US)
  Receive Date: 20240907
  Receipt Date: 20240907
  Transmission Date: 20241016
  Serious: Yes (Hospitalization)
  Sender: ACCORD
  Company Number: US-Accord-444111

PATIENT
  Age: 81 Year
  Sex: Female

DRUGS (1)
  1. CLOZAPINE [Suspect]
     Active Substance: CLOZAPINE
     Indication: Product used for unknown indication

REACTIONS (2)
  - Respiratory disorder [Unknown]
  - White blood cell count increased [Unknown]

NARRATIVE: CASE EVENT DATE: 20240822
